FAERS Safety Report 17895318 (Version 1)
Quarter: 2020Q2

REPORT INFORMATION
  Report Type: Spontaneous
  Country: ES (occurrence: ES)
  Receive Date: 20200615
  Receipt Date: 20200615
  Transmission Date: 20200714
  Serious: Yes (Hospitalization, Other)
  Sender: FDA-Public Use
  Company Number: ES-BAYER-2020-107597

PATIENT
  Age: 70 Year
  Sex: Female

DRUGS (2)
  1. CETUXIMAB. [Concomitant]
     Active Substance: CETUXIMAB
  2. STIVARGA [Suspect]
     Active Substance: REGORAFENIB
     Indication: COLORECTAL CANCER METASTATIC
     Dosage: 160 MG DAILY D1-21 Q4W
     Route: 048
     Dates: start: 201207, end: 201210

REACTIONS (10)
  - Incoherent [None]
  - Disorientation [None]
  - Accident [None]
  - Palmar-plantar erythrodysaesthesia syndrome [None]
  - Metastases to lung [None]
  - Hallucination [None]
  - Cystic lung disease [None]
  - Cerebral ischaemia [None]
  - Diarrhoea [None]
  - Dysphonia [None]

NARRATIVE: CASE EVENT DATE: 201211
